FAERS Safety Report 14378980 (Version 3)
Quarter: 2018Q1

REPORT INFORMATION
  Report Type: Spontaneous
  Country: DE (occurrence: DE)
  Receive Date: 20180112
  Receipt Date: 20180329
  Transmission Date: 20180509
  Serious: Yes (Hospitalization, Other)
  Sender: FDA-Public Use
  Company Number: DE-CIPLA LTD.-2018DE00172

PATIENT

DRUGS (3)
  1. LYRICA [Concomitant]
     Active Substance: PREGABALIN
     Indication: PRODUCT USED FOR UNKNOWN INDICATION
     Dosage: UNK
     Route: 048
     Dates: start: 20170901
  2. RISPERIDONE. [Suspect]
     Active Substance: RISPERIDONE
     Indication: SCHIZOPHRENIA
     Dosage: 2 SEPERATED DOSES DAILY DOSE: 2 MG MILLIGRAM(S) EVERY DAY
     Route: 048
     Dates: start: 20170901
  3. RISPERIDONE. [Suspect]
     Active Substance: RISPERIDONE
     Dosage: 37.5 (2 SEPERATED DOSES DAILY DOSE: 2 MG MILLIGRAM(S) EVERY DAY)
     Route: 065

REACTIONS (4)
  - Aggression [Unknown]
  - Hospitalisation [Unknown]
  - Boredom [Unknown]
  - Delinquency [Unknown]
